FAERS Safety Report 6071922-3 (Version None)
Quarter: 2009Q1

REPORT INFORMATION
  Report Type: 
  Country: None (occurrence: None)
  Receive Date: 20090210
  Receipt Date: 20090126
  Transmission Date: 20090719
  Serious: No
  Sender: FDA-Public Use
  Company Number: US-CELGENEUS-163-20785-08102009

PATIENT
  Sex: Male

DRUGS (7)
  1. REVLIMID [Suspect]
     Indication: MYELOFIBROSIS
     Route: 048
     Dates: start: 20081027
  2. THALOMID [Suspect]
     Indication: MYELOFIBROSIS
     Route: 048
     Dates: start: 20080723, end: 20081023
  3. HYDREA [Concomitant]
     Indication: MYELOFIBROSIS
     Route: 065
     Dates: start: 20080623, end: 20081211
  4. ASPIRIN [Concomitant]
     Indication: DRUG USE FOR UNKNOWN INDICATION
     Route: 065
  5. PAXIL [Concomitant]
     Indication: DRUG USE FOR UNKNOWN INDICATION
     Route: 065
  6. FLOMAX [Concomitant]
     Indication: DRUG USE FOR UNKNOWN INDICATION
     Route: 065
  7. BUMEX [Concomitant]
     Indication: DRUG USE FOR UNKNOWN INDICATION
     Route: 065

REACTIONS (4)
  - FALL [None]
  - FLUID RETENTION [None]
  - OEDEMA [None]
  - SCAR [None]
